FAERS Safety Report 7717914-7 (Version None)
Quarter: 2011Q3

REPORT INFORMATION
  Report Type: 
  Country: None (occurrence: None)
  Receive Date: 20110824
  Receipt Date: 20110809
  Transmission Date: 20111222
  Serious: Yes (Other)
  Sender: FDA-Public Use
  Company Number: B0740920A

PATIENT
  Age: 39 Year
  Sex: Male

DRUGS (2)
  1. FLOVENT [Suspect]
     Indication: RHINITIS ALLERGIC
     Dosage: PER DAY INTRANASAL
     Route: 045
  2. PROBENECIDE [Concomitant]

REACTIONS (3)
  - IMPAIRED DRIVING ABILITY [None]
  - VISUAL ACUITY REDUCED [None]
  - CATARACT SUBCAPSULAR [None]
